FAERS Safety Report 9684878 (Version 11)
Quarter: 2015Q1

REPORT INFORMATION
  Report Type: Report from Study
  Country: CA (occurrence: CA)
  Receive Date: 20131112
  Receipt Date: 20150220
  Transmission Date: 20150721
  Serious: Yes (Hospitalization, Other)
  Sender: FDA-Public Use
  Company Number: CA-ROCHE-1183959

PATIENT
  Age: 46 Year
  Sex: Female
  Weight: 116 kg

DRUGS (11)
  1. CLONAZEPAM. [Concomitant]
     Active Substance: CLONAZEPAM
  2. FOLIC ACID. [Concomitant]
     Active Substance: FOLIC ACID
  3. ATENOLOL. [Concomitant]
     Active Substance: ATENOLOL
  4. ACTEMRA [Suspect]
     Active Substance: TOCILIZUMAB
     Indication: RHEUMATOID ARTHRITIS
     Dosage: WEEKLY
     Route: 058
     Dates: start: 20140826
  5. NAPROSYN [Suspect]
     Active Substance: NAPROXEN
     Indication: PRODUCT USED FOR UNKNOWN INDICATION
     Route: 065
  6. LYRICA [Concomitant]
     Active Substance: PREGABALIN
  7. METHOTREXATE [Suspect]
     Active Substance: METHOTREXATE
     Indication: RHEUMATOID ARTHRITIS
     Route: 048
     Dates: end: 201402
  8. GLUCOSAMINE SULFATE [Concomitant]
     Active Substance: GLUCOSAMINE SULFATE
  9. ACTEMRA [Suspect]
     Active Substance: TOCILIZUMAB
     Indication: RHEUMATOID ARTHRITIS
     Route: 042
     Dates: start: 20121214, end: 20140729
  10. CYMBALTA [Concomitant]
     Active Substance: DULOXETINE HYDROCHLORIDE
  11. PERCOCET [Concomitant]
     Active Substance: ACETAMINOPHEN\OXYCODONE HYDROCHLORIDE

REACTIONS (18)
  - Dyskinesia [Not Recovered/Not Resolved]
  - Feeling cold [Recovered/Resolved]
  - Nephrolithiasis [Recovered/Resolved]
  - Upper respiratory tract infection [Not Recovered/Not Resolved]
  - Restless legs syndrome [Not Recovered/Not Resolved]
  - Intervertebral disc protrusion [Unknown]
  - Liver function test abnormal [Recovering/Resolving]
  - Otitis media [Unknown]
  - Fatigue [Not Recovered/Not Resolved]
  - Rheumatoid arthritis [Recovered/Resolved]
  - Drug ineffective [Not Recovered/Not Resolved]
  - Arthralgia [Unknown]
  - Weight increased [Not Recovered/Not Resolved]
  - Pain [Not Recovered/Not Resolved]
  - Pustular psoriasis [Not Recovered/Not Resolved]
  - Blood bilirubin increased [Unknown]
  - Fibromyalgia [Unknown]
  - Weight abnormal [Unknown]

NARRATIVE: CASE EVENT DATE: 2013
